FAERS Safety Report 23309796 (Version 1)
Quarter: 2023Q4

REPORT INFORMATION
  Report Type: Spontaneous
  Country: US (occurrence: None)
  Receive Date: 20231215
  Receipt Date: 20231215
  Transmission Date: 20240109
  Serious: No
  Sender: FDA-Public Use
  Company Number: None

PATIENT
  Age: 2 Year
  Sex: Female

DRUGS (2)
  1. MORPHINE SULFATE [Suspect]
     Active Substance: MORPHINE SULFATE
  2. NAPROXEN [Suspect]
     Active Substance: NAPROXEN

REACTIONS (3)
  - Wrong patient received product [None]
  - Product dispensing error [None]
  - Intercepted product dispensing error [None]

NARRATIVE: CASE EVENT DATE: 20231108
